FAERS Safety Report 5263589-9 (Version None)
Quarter: 2007Q1

REPORT INFORMATION
  Report Type: 
  Country: None (occurrence: None)
  Receive Date: 20070313
  Receipt Date: 20070306
  Transmission Date: 20070707
  Serious: Yes (Hospitalization)
  Sender: FDA-Public Use
  Company Number: CA-ROCHE-467089

PATIENT
  Age: 50 Year
  Sex: Female
  Weight: 62.5 kg

DRUGS (7)
  1. ZENAPAX [Suspect]
     Indication: MULTIPLE SCLEROSIS
     Route: 058
     Dates: start: 20060109, end: 20060530
  2. COLACE [Concomitant]
     Dates: start: 20060903
  3. AMITRIPTYLINE HCL [Concomitant]
     Dates: start: 20060418
  4. ZYPREXA [Concomitant]
     Dates: start: 20060805
  5. LIPITOR [Concomitant]
     Dates: start: 20060802
  6. IBUPROFEN [Concomitant]
     Dates: start: 20060824
  7. LYRICA [Concomitant]
     Dates: start: 20060824

REACTIONS (1)
  - RECTOCELE [None]
